FAERS Safety Report 6424007-8 (Version None)
Quarter: 2009Q4

REPORT INFORMATION
  Report Type: 
  Country: None (occurrence: None)
  Receive Date: 20091030
  Receipt Date: 20091030
  Transmission Date: 20100525
  Serious: No
  Sender: FDA-Public Use
  Company Number: None

PATIENT
  Age: 81 Year
  Sex: Female
  Weight: 75.2971 kg

DRUGS (1)
  1. NIASPAN [Suspect]
     Indication: BLOOD TRIGLYCERIDES INCREASED
     Dosage: 100MG ONE A DAY
     Dates: start: 20080515, end: 20081220

REACTIONS (7)
  - ASTHMA [None]
  - BURNING SENSATION [None]
  - FLUSHING [None]
  - LUNG DISORDER [None]
  - NASAL DISORDER [None]
  - PARANASAL SINUS HYPERSECRETION [None]
  - SINUS DISORDER [None]
